FAERS Safety Report 4467706-X (Version None)
Quarter: 2004Q4

REPORT INFORMATION
  Report Type: 
  Country: None (occurrence: None)
  Receive Date: 20041001
  Receipt Date: 20040920
  Transmission Date: 20050328
  Serious: Yes (Death, Disabling)
  Sender: FDA-Public Use
  Company Number: 2004069045

PATIENT
  Sex: Male

DRUGS (1)
  1. LIPITOR [Suspect]
     Indication: ILL-DEFINED DISORDER

REACTIONS (4)
  - ARTHRALGIA [None]
  - HEPATOCELLULAR DAMAGE [None]
  - RENAL FAILURE [None]
  - RHABDOMYOLYSIS [None]
